FAERS Safety Report 15080035 (Version 1)
Quarter: 2018Q2

REPORT INFORMATION
  Report Type: Spontaneous
  Country: HR (occurrence: HR)
  Receive Date: 20180627
  Receipt Date: 20180627
  Transmission Date: 20180711
  Serious: Yes (Hospitalization)
  Sender: FDA-Public Use
  Company Number: HR-ELI_LILLY_AND_COMPANY-HR201806006335

PATIENT
  Age: 46 Year
  Sex: Female

DRUGS (3)
  1. SANVAL [Concomitant]
     Active Substance: ZOLPIDEM TARTRATE
  2. ZYPADHERA [Suspect]
     Active Substance: OLANZAPINE PAMOATE
     Indication: PRODUCT USED FOR UNKNOWN INDICATION
     Dosage: UNK, UNKNOWN
     Route: 030
     Dates: start: 2013
  3. CYMBALTA [Suspect]
     Active Substance: DULOXETINE HYDROCHLORIDE
     Indication: PRODUCT USED FOR UNKNOWN INDICATION
     Dosage: UNK, UNKNOWN
     Route: 065

REACTIONS (3)
  - Agitation [Unknown]
  - Delirium [Unknown]
  - Confusional state [Unknown]

NARRATIVE: CASE EVENT DATE: 20180614
